FAERS Safety Report 6125422-2 (Version None)
Quarter: 2009Q1

REPORT INFORMATION
  Report Type: 
  Country: None (occurrence: None)
  Receive Date: 20090319
  Receipt Date: 20090319
  Transmission Date: 20090719
  Serious: Yes (Other)
  Sender: FDA-Public Use
  Company Number: None

PATIENT
  Age: 77 Year
  Sex: Male

DRUGS (1)
  1. MORPHINE [Suspect]
     Indication: PAIN
     Dosage: 0.5 MG -10ML- EVERY HOUR PRN PO
     Route: 048
     Dates: start: 20090312, end: 20090317

REACTIONS (3)
  - DRUG EFFECT DECREASED [None]
  - PAIN [None]
  - PRODUCT QUALITY ISSUE [None]
